FAERS Safety Report 8146891-2 (Version None)
Quarter: 2012Q1

REPORT INFORMATION
  Report Type: 
  Country: None (occurrence: None)
  Receive Date: 20120217
  Receipt Date: 20120207
  Transmission Date: 20120608
  Serious: Yes (Other)
  Sender: FDA-Public Use
  Company Number: US-ABBOTT-12P-163-0903477-00

PATIENT
  Age: 59 Year
  Sex: Male

DRUGS (2)
  1. HUMIRA [Suspect]
     Indication: RHEUMATOID ARTHRITIS
     Dosage: STOPPED FOR SURGERY
     Dates: start: 20090101, end: 20111201
  2. PLAQUENIL [Concomitant]
     Indication: PRODUCT USED FOR UNKNOWN INDICATION

REACTIONS (5)
  - MUSCULOSKELETAL STIFFNESS [None]
  - NECK PAIN [None]
  - PRODUCTIVE COUGH [None]
  - NERVE COMPRESSION [None]
  - PAIN [None]
